FAERS Safety Report 12521248 (Version 1)
Quarter: 2016Q3

REPORT INFORMATION
  Report Type: Spontaneous
  Country: CN (occurrence: CN)
  Receive Date: 20160701
  Receipt Date: 20160701
  Transmission Date: 20161109
  Serious: Yes (Other)
  Sender: FDA-Public Use
  Company Number: CN-BAXTER-2016BAX033682

PATIENT
  Age: 78 Year
  Sex: Female
  Weight: 40 kg

DRUGS (3)
  1. 0.9% SODIUM CHLORIDE INJECTION [Suspect]
     Active Substance: SODIUM CHLORIDE
     Indication: MEDICATION DILUTION
     Route: 041
     Dates: start: 20151222, end: 20151222
  2. METOCLOPRAMIDE HYDROCHLORIDE. [Suspect]
     Active Substance: METOCLOPRAMIDE HYDROCHLORIDE
     Indication: PRODUCT USED FOR UNKNOWN INDICATION
     Route: 030
     Dates: start: 20151222
  3. SULPERAZONE [Suspect]
     Active Substance: CEFOPERAZONE SODIUM\SULBACTAM SODIUM
     Indication: LUNG INFECTION
     Route: 041
     Dates: start: 20151222, end: 20151222

REACTIONS (9)
  - Diarrhoea [Recovering/Resolving]
  - Chest discomfort [Recovering/Resolving]
  - Wheezing [Recovering/Resolving]
  - Abdominal distension [Recovering/Resolving]
  - Oedema peripheral [Recovering/Resolving]
  - Abdominal pain [Recovering/Resolving]
  - Nausea [Recovered/Resolved]
  - Nausea [Recovering/Resolving]
  - Depressed mood [Recovering/Resolving]

NARRATIVE: CASE EVENT DATE: 20151222
